FAERS Safety Report 11572118 (Version 2)
Quarter: 2015Q4

REPORT INFORMATION
  Report Type: Spontaneous
  Country: US (occurrence: US)
  Receive Date: 20150916
  Receipt Date: 20151027
  Transmission Date: 20160304
  Serious: No
  Sender: FDA-Public Use
  Company Number: US-ELI_LILLY_AND_COMPANY-US200910001526

PATIENT
  Sex: Female

DRUGS (2)
  1. FORTEO [Suspect]
     Active Substance: TERIPARATIDE
     Dosage: 20 UG, DAILY (1/D)
     Dates: end: 20100819
  2. FORTEO [Suspect]
     Active Substance: TERIPARATIDE
     Indication: BONE DISORDER
     Dosage: 20 UG, DAILY (1/D)

REACTIONS (8)
  - Dizziness [Unknown]
  - Constipation [Unknown]
  - Blood pressure increased [Not Recovered/Not Resolved]
  - Head discomfort [Unknown]
  - Cholelithiasis [Unknown]
  - Visual impairment [Unknown]
  - Asthenia [Unknown]
  - Hepatic enzyme increased [Unknown]
